FAERS Safety Report 7915844-9 (Version None)
Quarter: 2011Q4

REPORT INFORMATION
  Report Type: 
  Country: None (occurrence: None)
  Receive Date: 20111115
  Receipt Date: 20111110
  Transmission Date: 20120403
  Serious: No
  Sender: FDA-Public Use
  Company Number: US-BAYER-2011-109735

PATIENT
  Age: 70 Year
  Sex: Female
  Weight: 74.83 kg

DRUGS (2)
  1. ALEVE (CAPLET) [Suspect]
     Dosage: 220 MG, ONCE
     Route: 048
     Dates: start: 20111109, end: 20111109
  2. ASPIRIN [Suspect]
     Dosage: 325 MG, QD
     Route: 048
     Dates: start: 20111109

REACTIONS (3)
  - MYALGIA [None]
  - PYREXIA [None]
  - NERVOUSNESS [None]
